FAERS Safety Report 7315048-7 (Version None)
Quarter: 2011Q1

REPORT INFORMATION
  Report Type: 
  Country: None (occurrence: None)
  Receive Date: 20110225
  Receipt Date: 20100319
  Transmission Date: 20110831
  Serious: No
  Sender: FDA-Public Use
  Company Number: US-MYLANLABS-2010S1004742

PATIENT
  Age: 16 Year
  Sex: Female

DRUGS (8)
  1. AMNESTEEM [Suspect]
     Indication: ACNE
     Route: 048
     Dates: start: 20091229, end: 20100208
  2. ALBUTEROL [Concomitant]
  3. AMNESTEEM [Suspect]
     Route: 048
     Dates: start: 20100201, end: 20100208
  4. VOLTAREN [Concomitant]
  5. HYDROCORTISONE [Concomitant]
  6. CELEXA [Concomitant]
     Route: 048
     Dates: start: 20090801
  7. REGLAN [Concomitant]
  8. YAZ /01502501/ [Concomitant]

REACTIONS (2)
  - MOOD SWINGS [None]
  - DEPRESSION [None]
